FAERS Safety Report 8440414-6 (Version None)
Quarter: 2012Q2

REPORT INFORMATION
  Report Type: 
  Country: None (occurrence: None)
  Receive Date: 20120615
  Receipt Date: 20120604
  Transmission Date: 20120825
  Serious: Yes (Other)
  Sender: FDA-Public Use
  Company Number: US-BAYER-2012-056441

PATIENT
  Age: 66 Year
  Sex: Male

DRUGS (2)
  1. OTHER MEDICATIONS NOS [Concomitant]
  2. ASPIRIN [Suspect]
     Dosage: UNK

REACTIONS (3)
  - MYALGIA [None]
  - BACK PAIN [None]
  - METASTASES TO BONE [None]
